FAERS Safety Report 18048729 (Version 1)
Quarter: 2020Q3

REPORT INFORMATION
  Report Type: Spontaneous
  Country: US (occurrence: US)
  Receive Date: 20200720
  Receipt Date: 20200720
  Transmission Date: 20201103
  Serious: Yes (Hospitalization)
  Sender: FDA-Public Use
  Company Number: None

PATIENT
  Age: 59 Year
  Sex: Female

DRUGS (13)
  1. VENLAFAXINE [Concomitant]
     Active Substance: VENLAFAXINE HYDROCHLORIDE
  2. GLATIRAMER 40MG/ML SYR [Suspect]
     Active Substance: GLATIRAMER
     Indication: MULTIPLE SCLEROSIS
     Route: 058
     Dates: start: 20200429
  3. MIRTAZAPINE. [Concomitant]
     Active Substance: MIRTAZAPINE
  4. QUETIAPINE. [Concomitant]
     Active Substance: QUETIAPINE
  5. NITROGLYCERN [Concomitant]
  6. TIZANIDINE. [Concomitant]
     Active Substance: TIZANIDINE
  7. AMLODIPINE [Concomitant]
     Active Substance: AMLODIPINE BESYLATE
  8. ASPIRIN. [Concomitant]
     Active Substance: ASPIRIN
  9. METOROL TAR [Concomitant]
  10. OXCARBAZEPIN [Concomitant]
     Active Substance: OXCARBAZEPINE
  11. BUPROPN HCL [Concomitant]
     Active Substance: BUPROPION HYDROCHLORIDE
  12. HYDROCO/APAP [Concomitant]
     Active Substance: ACETAMINOPHEN\HYDROCODONE
  13. ISOSORB MONO [Concomitant]
     Active Substance: ISOSORBIDE MONONITRATE

REACTIONS (1)
  - Hospitalisation [None]

NARRATIVE: CASE EVENT DATE: 20200717
